FAERS Safety Report 16360723 (Version 1)
Quarter: 2019Q2

REPORT INFORMATION
  Report Type: Spontaneous
  Country: US (occurrence: US)
  Receive Date: 20190528
  Receipt Date: 20190528
  Transmission Date: 20190711
  Serious: Yes (Other)
  Sender: FDA-Public Use
  Company Number: US-TEVA-2019-US-1056605

PATIENT
  Age: 71 Year
  Sex: Female

DRUGS (4)
  1. FOSAMAX [Suspect]
     Active Substance: ALENDRONATE SODIUM
     Route: 048
  2. BONIVA [Suspect]
     Active Substance: IBANDRONATE SODIUM
     Indication: OSTEOPOROSIS
     Route: 048
  3. RISEDRONATE SODIUM. [Suspect]
     Active Substance: RISEDRONATE SODIUM
     Indication: PRODUCT USED FOR UNKNOWN INDICATION
     Route: 065
  4. FOSAMAX [Suspect]
     Active Substance: ALENDRONATE SODIUM
     Indication: PRODUCT USED FOR UNKNOWN INDICATION
     Route: 048
     Dates: start: 20020228

REACTIONS (4)
  - Femur fracture [Unknown]
  - Sciatica [Unknown]
  - Osteoarthritis [Unknown]
  - Fall [Unknown]

NARRATIVE: CASE EVENT DATE: 20070102
